FAERS Safety Report 26169182 (Version 1)
Quarter: 2025Q4

REPORT INFORMATION
  Report Type: Spontaneous
  Country: US (occurrence: None)
  Receive Date: 20251217
  Receipt Date: 20251217
  Transmission Date: 20260117
  Serious: Yes (Hospitalization)
  Sender: FDA-CTU
  Company Number: None

PATIENT
  Age: 53 Year
  Sex: Male
  Weight: 94 kg

DRUGS (4)
  1. FLUOROURACIL [Suspect]
     Active Substance: FLUOROURACIL
     Dates: end: 20251201
  2. IRINOTECAN [Suspect]
     Active Substance: IRINOTECAN
     Dates: end: 20251201
  3. LEUCOVORIN CALCIUM [Suspect]
     Active Substance: LEUCOVORIN CALCIUM
     Dates: end: 20251201
  4. ELOXATIN [Suspect]
     Active Substance: OXALIPLATIN
     Dates: end: 20251201

REACTIONS (5)
  - Dysphagia [None]
  - Nausea [None]
  - Vomiting [None]
  - Device dislocation [None]
  - Oesophageal obstruction [None]

NARRATIVE: CASE EVENT DATE: 20251210
